FAERS Safety Report 24032702 (Version 2)
Quarter: 2025Q1

REPORT INFORMATION
  Report Type: Spontaneous
  Country: US (occurrence: US)
  Receive Date: 20240701
  Receipt Date: 20250130
  Transmission Date: 20250409
  Serious: Yes (Other)
  Sender: SANOFI AVENTIS
  Company Number: US-SA-SAC20240627000231

PATIENT
  Age: 54 Year
  Sex: Female
  Weight: 82 kg

DRUGS (1)
  1. DUPIXENT [Suspect]
     Active Substance: DUPILUMAB
     Indication: Illness
     Dosage: 300 MG, QOW
     Route: 058

REACTIONS (2)
  - Coronary artery bypass [Unknown]
  - Mitral valve replacement [Unknown]

NARRATIVE: CASE EVENT DATE: 20231201
